FAERS Safety Report 21834915 (Version 6)
Quarter: 2025Q4

REPORT INFORMATION
  Report Type: Spontaneous
  Country: US (occurrence: US)
  Receive Date: 20230109
  Receipt Date: 20251110
  Transmission Date: 20260117
  Serious: Yes (Other)
  Sender: PFIZER
  Company Number: US-PFIZER INC-PV202300002381

PATIENT
  Age: 79 Year
  Sex: Female

DRUGS (2)
  1. PREMARIN [Suspect]
     Active Substance: ESTROGENS, CONJUGATED
     Indication: Hormone level abnormal
     Dosage: UNK
  2. PREMARIN [Suspect]
     Active Substance: ESTROGENS, CONJUGATED
     Indication: Infection

REACTIONS (6)
  - Internal haemorrhage [Unknown]
  - Cerebrovascular accident [Unknown]
  - Fall [Unknown]
  - Head injury [Unknown]
  - Hypoacusis [Unknown]
  - Off label use [Unknown]
